FAERS Safety Report 5143769-3 (Version None)
Quarter: 2006Q4

REPORT INFORMATION
  Report Type: 
  Country: None (occurrence: None)
  Receive Date: 20061106
  Receipt Date: 20061023
  Transmission Date: 20070319
  Serious: Yes (Other)
  Sender: FDA-Public Use
  Company Number: US-JNJFOC-20061005712

PATIENT
  Sex: Female
  Weight: 77.11 kg

DRUGS (5)
  1. FENTANYL TRANSDERMAL SYSTEM [Suspect]
     Indication: BACK DISORDER
     Route: 062
     Dates: start: 20061020, end: 20061021
  2. AMITRIPTYLINE HCL [Concomitant]
     Indication: DRUG USE FOR UNKNOWN INDICATION
     Dosage: AT NIGHT
     Route: 048
  3. ASPIRIN [Concomitant]
     Indication: NEUROPATHY
     Route: 048
  4. ENDOCET [Concomitant]
     Indication: PAIN
     Dosage: 5/325UG
     Route: 048
  5. NPH INSULIN [Concomitant]
     Indication: DIABETES MELLITUS
     Dosage: 24  1 INJECTION IN MORNING
     Route: 058

REACTIONS (12)
  - ASTHENIA [None]
  - BLOOD GLUCOSE DECREASED [None]
  - DRUG INEFFECTIVE [None]
  - DYSPHEMIA [None]
  - FEELING HOT [None]
  - GAIT DISTURBANCE [None]
  - HYPERHIDROSIS [None]
  - ILL-DEFINED DISORDER [None]
  - MALAISE [None]
  - MORBID THOUGHTS [None]
  - SPEECH DISORDER [None]
  - TREMOR [None]
